FAERS Safety Report 8186808-8 (Version None)
Quarter: 2012Q1

REPORT INFORMATION
  Report Type: 
  Country: None (occurrence: None)
  Receive Date: 20120306
  Receipt Date: 20120223
  Transmission Date: 20120608
  Serious: Yes (Hospitalization)
  Sender: FDA-Public Use
  Company Number: GB-BRISTOL-MYERS SQUIBB COMPANY-16427122

PATIENT
  Age: 89 Year
  Sex: Female
  Weight: 65 kg

DRUGS (4)
  1. ASPIRIN [Concomitant]
  2. GLICLAZIDE [Concomitant]
  3. METFORMIN HCL [Suspect]
     Route: 048
     Dates: end: 20120105
  4. ROSUVASTATIN [Concomitant]

REACTIONS (5)
  - HAEMATEMESIS [None]
  - GLOMERULAR FILTRATION RATE ABNORMAL [None]
  - WHITE BLOOD CELL COUNT INCREASED [None]
  - BLOOD LACTIC ACID [None]
  - BLOOD CREATININE INCREASED [None]
